FAERS Safety Report 6827761-6 (Version None)
Quarter: 2010Q3

REPORT INFORMATION
  Report Type: 
  Country: None (occurrence: None)
  Receive Date: 20100709
  Receipt Date: 20100707
  Transmission Date: 20110219
  Serious: No
  Sender: FDA-Public Use
  Company Number: B0645593A

PATIENT
  Age: 25 Year
  Sex: Female

DRUGS (11)
  1. ZANAMIVIR [Suspect]
     Indication: INFLUENZA
     Dosage: 600MG TWICE PER DAY
     Route: 042
     Dates: start: 20100312, end: 20100317
  2. TAMIFLU [Concomitant]
  3. GUAIFENESIN [Concomitant]
  4. ACETAMINOPHEN [Concomitant]
  5. TYLENOL [Concomitant]
  6. AMPICILLIN SODIUM [Concomitant]
  7. ROCEPHIN [Concomitant]
  8. LACTATED RINGER'S [Concomitant]
  9. ALBUTEROL [Concomitant]
  10. IPRATROPIUM BROMIDE [Concomitant]
  11. NORMAL SALINE [Concomitant]

REACTIONS (2)
  - DRUG EXPOSURE DURING PREGNANCY [None]
  - LIVE BIRTH [None]
